FAERS Safety Report 16743798 (Version 1)
Quarter: 2019Q3

REPORT INFORMATION
  Report Type: Spontaneous
  Country: US (occurrence: US)
  Receive Date: 20190827
  Receipt Date: 20190827
  Transmission Date: 20191005
  Serious: Yes (Death, Other)
  Sender: FDA-Public Use
  Company Number: US-SAREPTA THERAPEUTICS INC.-SRP2019-000521

PATIENT
  Age: 20 Year
  Sex: Male
  Weight: 26.9 kg

DRUGS (2)
  1. EXONDYS 51 [Suspect]
     Active Substance: ETEPLIRSEN
     Dosage: 1500 MG, WEEKLY
     Route: 042
     Dates: start: 20171121
  2. EXONDYS 51 [Suspect]
     Active Substance: ETEPLIRSEN
     Indication: DUCHENNE MUSCULAR DYSTROPHY
     Dosage: 30 MG/KG, WEEKLY
     Route: 042
     Dates: start: 20171121

REACTIONS (1)
  - Death [Fatal]

NARRATIVE: CASE EVENT DATE: 20190821
